FAERS Safety Report 10286375 (Version 2)
Quarter: 2014Q3

REPORT INFORMATION
  Report Type: Spontaneous
  Country: US (occurrence: US)
  Receive Date: 20140709
  Receipt Date: 20140822
  Transmission Date: 20150326
  Serious: No
  Sender: FDA-Public Use
  Company Number: US-PFIZER INC-2014190883

PATIENT
  Age: 70 Year
  Sex: Female
  Weight: 65.76 kg

DRUGS (2)
  1. FENTANYL. [Concomitant]
     Active Substance: FENTANYL
     Dosage: UNK
     Route: 062
  2. LYRICA [Suspect]
     Active Substance: PREGABALIN
     Dosage: 150 MG, 3X/DAY
     Route: 048
     Dates: start: 2013, end: 2013

REACTIONS (3)
  - Rhinorrhoea [Unknown]
  - Chills [Unknown]
  - Influenza like illness [Unknown]

NARRATIVE: CASE EVENT DATE: 2013
